FAERS Safety Report 8800397 (Version 2)
Quarter: 2015Q3

REPORT INFORMATION
  Report Type: Report from Study
  Country: US (occurrence: US)
  Receive Date: 20120921
  Receipt Date: 20150803
  Transmission Date: 20151125
  Serious: Yes (Death)
  Sender: FDA-Public Use
  Company Number: US-ROCHE-1103440

PATIENT
  Sex: Male

DRUGS (19)
  1. LISINOPRIL. [Concomitant]
     Active Substance: LISINOPRIL
  2. EMEND [Concomitant]
     Active Substance: APREPITANT
     Route: 048
  3. ALOXI [Concomitant]
     Active Substance: PALONOSETRON HYDROCHLORIDE
  4. IRINOTECAN [Concomitant]
     Active Substance: IRINOTECAN
     Route: 042
  5. PEPCID [Concomitant]
     Active Substance: FAMOTIDINE
     Route: 048
  6. VITAMIN B12 [Concomitant]
     Active Substance: CYANOCOBALAMIN
     Route: 058
  7. DECADRON [Concomitant]
     Active Substance: DEXAMETHASONE
     Route: 048
  8. KEPPRA [Concomitant]
     Active Substance: LEVETIRACETAM
     Route: 042
  9. HEPARIN [Concomitant]
     Active Substance: HEPARIN SODIUM
     Route: 058
  10. VITAMIN B12 [Concomitant]
     Active Substance: CYANOCOBALAMIN
     Route: 048
  11. AVASTIN [Suspect]
     Active Substance: BEVACIZUMAB
     Indication: NEOVASCULAR AGE-RELATED MACULAR DEGENERATION
     Route: 042
     Dates: start: 20080627
  12. AVASTIN [Suspect]
     Active Substance: BEVACIZUMAB
     Indication: BRAIN NEOPLASM MALIGNANT
  13. DECADRON [Concomitant]
     Active Substance: DEXAMETHASONE
     Route: 048
  14. IMODIUM [Concomitant]
     Active Substance: LOPERAMIDE HYDROCHLORIDE
  15. BACTRIM [Concomitant]
     Active Substance: SULFAMETHOXAZOLE\TRIMETHOPRIM
     Dosage: 160 MG-800 MG FOR 3 DAYS
     Route: 048
  16. PEPCID [Concomitant]
     Active Substance: FAMOTIDINE
     Route: 048
  17. TYLENOL [Concomitant]
     Active Substance: ACETAMINOPHEN
     Route: 048
  18. ZESTRIL [Concomitant]
     Active Substance: LISINOPRIL
     Route: 048
  19. COGENTIN [Concomitant]
     Active Substance: BENZTROPINE MESYLATE
     Route: 048

REACTIONS (9)
  - Sinus tachycardia [Unknown]
  - Peripheral swelling [Unknown]
  - Fatigue [Unknown]
  - Acquired diaphragmatic eventration [Unknown]
  - Off label use [Unknown]
  - Pain in extremity [Unknown]
  - Hypoxia [Unknown]
  - Dysphonia [Unknown]
  - Death [Fatal]
